FAERS Safety Report 7964878-7 (Version None)
Quarter: 2011Q4

REPORT INFORMATION
  Report Type: 
  Country: None (occurrence: None)
  Receive Date: 20111208
  Receipt Date: 20111208
  Transmission Date: 20120403
  Serious: No
  Sender: FDA-Public Use
  Company Number: None

PATIENT
  Age: 51 Year
  Sex: Female
  Weight: 61.234 kg

DRUGS (1)
  1. LISINOPRIL [Suspect]
     Indication: HYPERTENSION
     Dosage: 1 TABLET
     Route: 048
     Dates: start: 20110901, end: 20111001

REACTIONS (6)
  - MUSCLE TWITCHING [None]
  - NAUSEA [None]
  - INSOMNIA [None]
  - PANIC ATTACK [None]
  - TINNITUS [None]
  - ACTIVITIES OF DAILY LIVING IMPAIRED [None]
